FAERS Safety Report 16252159 (Version 1)
Quarter: 2019Q2

REPORT INFORMATION
  Report Type: Spontaneous
  Country: IT (occurrence: IT)
  Receive Date: 20190429
  Receipt Date: 20190429
  Transmission Date: 20190711
  Serious: Yes (Other)
  Sender: FDA-Public Use
  Company Number: IT-PFIZER INC-2019176204

PATIENT
  Age: 62 Year
  Sex: Female

DRUGS (7)
  1. MEDROL [Concomitant]
     Active Substance: METHYLPREDNISOLONE
  2. CARDICOR [Concomitant]
     Active Substance: BISOPROLOL
  3. DIBASE [Concomitant]
     Active Substance: CHOLECALCIFEROL
  4. FERRO-GRAD [Concomitant]
     Active Substance: FERROUS SULFATE
  5. LANSOPRAZOLE. [Concomitant]
     Active Substance: LANSOPRAZOLE
  6. SALAZOPYRIN EN [Suspect]
     Active Substance: SULFASALAZINE
     Indication: ARTHRITIS ENTEROPATHIC
     Dosage: 2 G, 1X/DAY
     Route: 048
     Dates: start: 20060101, end: 20190314
  7. TAREG [Concomitant]
     Active Substance: VALSARTAN

REACTIONS (2)
  - Azotaemia [Recovering/Resolving]
  - Blood creatinine increased [Recovering/Resolving]

NARRATIVE: CASE EVENT DATE: 20190317
